FAERS Safety Report 9792298 (Version 1)
Quarter: 2014Q1

REPORT INFORMATION
  Report Type: Spontaneous
  Country: US (occurrence: US)
  Receive Date: 20140102
  Receipt Date: 20140102
  Transmission Date: 20141002
  Serious: No
  Sender: FDA-Public Use
  Company Number: US-BAXTER-2013BAX050587

PATIENT
  Sex: Female

DRUGS (3)
  1. DIANEAL LOW CALCIUM [Suspect]
     Indication: RENAL FAILURE CHRONIC
     Route: 033
     Dates: start: 201307
  2. DIANEAL LOW CALCIUM [Suspect]
     Indication: RENAL FAILURE CHRONIC
     Route: 033
     Dates: start: 201307
  3. DIANEAL LOW CALCIUM [Suspect]
     Indication: RENAL FAILURE CHRONIC
     Route: 033
     Dates: start: 201307

REACTIONS (6)
  - Exfoliative rash [Recovering/Resolving]
  - Dry skin [Recovering/Resolving]
  - Catheter site rash [Recovering/Resolving]
  - Dermatitis contact [Recovering/Resolving]
  - Rash generalised [Recovering/Resolving]
  - Rash pruritic [Recovering/Resolving]
